FAERS Safety Report 25172147 (Version 2)
Quarter: 2025Q2

REPORT INFORMATION
  Report Type: Report from Study
  Country: US (occurrence: US)
  Receive Date: 20250408
  Receipt Date: 20250502
  Transmission Date: 20250717
  Serious: Yes (Other)
  Sender: UCB
  Company Number: US-UCBSA-2025019515

PATIENT
  Age: 16 Year
  Sex: Male

DRUGS (3)
  1. FINTEPLA [Suspect]
     Active Substance: FENFLURAMINE
     Indication: Severe myoclonic epilepsy of infancy
     Dosage: 6 MILLILITER, 2X/DAY (BID)
     Dates: start: 20230302
  2. FINTEPLA [Suspect]
     Active Substance: FENFLURAMINE
     Dosage: 6 MILLILITER, 2X/DAY (BID)
  3. TOPAMAX [Suspect]
     Active Substance: TOPIRAMATE
     Indication: Product used for unknown indication

REACTIONS (11)
  - Seizure [Unknown]
  - Dehydration [Recovered/Resolved]
  - Gait disturbance [Recovered/Resolved]
  - Balance disorder [Unknown]
  - Grip strength decreased [Recovered/Resolved]
  - Dyskinesia [Recovered/Resolved]
  - Nasopharyngitis [Recovered/Resolved]
  - Aggression [Recovering/Resolving]
  - Disorientation [Unknown]
  - Grunting [Unknown]
  - Insomnia [Unknown]

NARRATIVE: CASE EVENT DATE: 20250317
